FAERS Safety Report 7287518-1 (Version None)
Quarter: 2011Q1

REPORT INFORMATION
  Report Type: 
  Country: None (occurrence: None)
  Receive Date: 20110211
  Receipt Date: 20110207
  Transmission Date: 20110831
  Serious: Yes (Other)
  Sender: FDA-Public Use
  Company Number: ES-BRISTOL-MYERS SQUIBB COMPANY-15535172

PATIENT
  Sex: Male

DRUGS (1)
  1. ABATACEPT [Suspect]

REACTIONS (1)
  - SARCOIDOSIS [None]
